FAERS Safety Report 7007436-3 (Version None)
Quarter: 2010Q3

REPORT INFORMATION
  Report Type: 
  Country: None (occurrence: None)
  Receive Date: 20100914
  Receipt Date: 20100902
  Transmission Date: 20110219
  Serious: Yes (Hospitalization, Other)
  Sender: FDA-Public Use
  Company Number: 2010SP003812

PATIENT
  Age: 26 Year
  Sex: Female
  Weight: 145.151 kg

DRUGS (1)
  1. NUVARING [Suspect]
     Indication: CONTRACEPTION
     Dates: start: 20041130, end: 20080101

REACTIONS (5)
  - ANTITHROMBIN III DECREASED [None]
  - CERVICAL DYSPLASIA [None]
  - DEEP VEIN THROMBOSIS [None]
  - METRORRHAGIA [None]
  - PULMONARY EMBOLISM [None]
